FAERS Safety Report 15468345 (Version 1)
Quarter: 2018Q4

REPORT INFORMATION
  Report Type: Spontaneous
  Country: US (occurrence: US)
  Receive Date: 20181005
  Receipt Date: 20181005
  Transmission Date: 20190204
  Serious: Yes (Death)
  Sender: FDA-Public Use
  Company Number: None

PATIENT
  Age: 38 Year
  Sex: Male
  Weight: 92.53 kg

DRUGS (1)
  1. KRATOM [Suspect]
     Active Substance: MITRAGYNINE\HERBALS
     Indication: PAIN
     Route: 048
     Dates: start: 20170304, end: 20170326

REACTIONS (3)
  - Unresponsive to stimuli [None]
  - Toxicity to various agents [None]
  - Accidental death [None]

NARRATIVE: CASE EVENT DATE: 20170326
